FAERS Safety Report 6234984-6 (Version None)
Quarter: 2009Q2

REPORT INFORMATION
  Report Type: 
  Country: None (occurrence: None)
  Receive Date: 20090616
  Receipt Date: 20090608
  Transmission Date: 20091009
  Serious: Yes (Other)
  Sender: FDA-Public Use
  Company Number: ADR3012009               (DE-BFARM-09-006367)

PATIENT
  Age: 50 Year
  Sex: Female

DRUGS (1)
  1. LAMOTRIGINE [Suspect]
     Indication: PARTIAL SEIZURES
     Dosage: 300 MG, ORAL
     Route: 048
     Dates: start: 20030101, end: 20080101

REACTIONS (1)
  - ALVEOLITIS [None]
